FAERS Safety Report 14934365 (Version 1)
Quarter: 2018Q2

REPORT INFORMATION
  Report Type: Spontaneous
  Country: US (occurrence: US)
  Receive Date: 20180524
  Receipt Date: 20180524
  Transmission Date: 20180711
  Serious: No
  Sender: FDA-Public Use
  Company Number: US-BAYER-2018-099374

PATIENT
  Age: 80 Year
  Sex: Female
  Weight: 94.97 kg

DRUGS (8)
  1. SIMVASTIN [Concomitant]
     Active Substance: SIMVASTATIN
  2. AZELASTINE. [Concomitant]
     Active Substance: AZELASTINE HYDROCHLORIDE
  3. MULTIVITAMINS [Concomitant]
     Active Substance: VITAMINS
  4. CALCIUM [ASCORBIC ACID,CALCIUM LACTATE GLUCONATE] [Concomitant]
  5. NASACORT [Concomitant]
     Active Substance: TRIAMCINOLONE ACETONIDE
  6. GLUCOSAMINE SULFATE [Concomitant]
     Active Substance: GLUCOSAMINE SULFATE
  7. LOSARTAN POTASSIUM. [Concomitant]
     Active Substance: LOSARTAN POTASSIUM
  8. ALEVE [Suspect]
     Active Substance: NAPROXEN SODIUM
     Indication: PAIN
     Dosage: 1 DF, UNK
     Route: 048
     Dates: start: 201707, end: 2018

REACTIONS (2)
  - Expired product administered [Unknown]
  - Therapeutic response unexpected [Unknown]

NARRATIVE: CASE EVENT DATE: 201707
